FAERS Safety Report 9108367 (Version 5)
Quarter: 2013Q3

REPORT INFORMATION
  Report Type: Report from Study
  Country: US (occurrence: US)
  Receive Date: 20130222
  Receipt Date: 20130703
  Transmission Date: 20140515
  Serious: Yes (Hospitalization, Other)
  Sender: FDA-Public Use
  Company Number: US-ABBOTT-13P-163-1050801-00

PATIENT
  Age: 65 Year
  Sex: Female

DRUGS (15)
  1. HUMIRA [Suspect]
     Indication: CROHN^S DISEASE
     Dates: start: 20121228, end: 20130517
  2. SINGULAIR [Concomitant]
     Indication: ASTHMA
     Dosage: 1 TAB EVERY EVENING
  3. PULMICORT [Concomitant]
     Indication: ASTHMA
     Dosage: INHALER
  4. RESCUE INHALERS [Concomitant]
     Indication: PRODUCT USED FOR UNKNOWN INDICATION
  5. FOSAMAX [Concomitant]
     Indication: BONE DENSITY DECREASED
  6. FOSAMAX [Concomitant]
     Indication: OSTEOPOROSIS
  7. IRON [Concomitant]
     Indication: ANAEMIA
  8. COLESTIPOL [Concomitant]
     Indication: BLOOD CHOLESTEROL INCREASED
     Dosage: DAILY
  9. FOLIC ACID [Concomitant]
     Indication: PRODUCT USED FOR UNKNOWN INDICATION
  10. CALCIUM [Concomitant]
     Indication: PRODUCT USED FOR UNKNOWN INDICATION
  11. MAGNESIUM [Concomitant]
     Indication: PRODUCT USED FOR UNKNOWN INDICATION
  12. POTASSIUM CHLORIDE [Concomitant]
     Indication: PRODUCT USED FOR UNKNOWN INDICATION
  13. VITAMIN B12 [Concomitant]
     Indication: PRODUCT USED FOR UNKNOWN INDICATION
  14. PROBIOTICS [Concomitant]
     Indication: PRODUCT USED FOR UNKNOWN INDICATION
  15. PREDNISONE [Concomitant]

REACTIONS (22)
  - Nephrolithiasis [Recovering/Resolving]
  - Small intestinal obstruction [Unknown]
  - Constipation [Unknown]
  - Gastrointestinal pain [Unknown]
  - Vomiting [Unknown]
  - Eructation [Unknown]
  - Injection site pain [Not Recovered/Not Resolved]
  - Cough [Unknown]
  - Injection site pain [Unknown]
  - Injection site pain [Unknown]
  - Nausea [Not Recovered/Not Resolved]
  - Abdominal pain [Not Recovered/Not Resolved]
  - Biliary colic [Not Recovered/Not Resolved]
  - Intestinal stenosis [Not Recovered/Not Resolved]
  - Injection site haemorrhage [Unknown]
  - Pain [Unknown]
  - Blood albumin decreased [Unknown]
  - Cholecystitis infective [Unknown]
  - Stoma site inflammation [Not Recovered/Not Resolved]
  - Memory impairment [Not Recovered/Not Resolved]
  - Volvulus [Unknown]
  - Gastrointestinal inflammation [Unknown]
